FAERS Safety Report 6984154-9 (Version None)
Quarter: 2010Q3

REPORT INFORMATION
  Report Type: 
  Country: None (occurrence: None)
  Receive Date: 20100915
  Receipt Date: 20090821
  Transmission Date: 20110219
  Serious: No
  Sender: FDA-Public Use
  Company Number: US-WYE-H10691509

PATIENT
  Sex: Female

DRUGS (2)
  1. LYBREL [Suspect]
     Indication: DYSMENORRHOEA
     Route: 048
     Dates: start: 20080401, end: 20090401
  2. LYBREL [Suspect]
     Route: 048
     Dates: start: 20090501

REACTIONS (4)
  - DRUG INEFFECTIVE [None]
  - HYPOMENORRHOEA [None]
  - MENORRHAGIA [None]
  - PRODUCT QUALITY ISSUE [None]
